FAERS Safety Report 6049567-0 (Version None)
Quarter: 2009Q1

REPORT INFORMATION
  Report Type: 
  Country: None (occurrence: None)
  Receive Date: 20090123
  Receipt Date: 20090113
  Transmission Date: 20090719
  Serious: Yes (Other)
  Sender: FDA-Public Use
  Company Number: AU-PFIZER INC-2008099279

PATIENT

DRUGS (3)
  1. LYRICA [Suspect]
     Dosage: 75 MG, UNK
  2. LIPITOR [Concomitant]
     Dosage: 20 MG, 1X/DAY
  3. SOMAC [Concomitant]
     Dosage: 40 MG, 1X/DAY

REACTIONS (8)
  - ABDOMINAL DISCOMFORT [None]
  - DIZZINESS [None]
  - HEADACHE [None]
  - HYPOAESTHESIA FACIAL [None]
  - NAUSEA [None]
  - PALPITATIONS [None]
  - SPEECH DISORDER [None]
  - VISION BLURRED [None]
